FAERS Safety Report 22211242 (Version 2)
Quarter: 2023Q2

REPORT INFORMATION
  Report Type: Report from Study
  Country: US (occurrence: US)
  Receive Date: 20230414
  Receipt Date: 20230502
  Transmission Date: 20230722
  Serious: Yes (Hospitalization, Other)
  Sender: FDA-Public Use
  Company Number: US-ORG100014127-2023000367

PATIENT
  Age: 44 Year
  Sex: Male

DRUGS (10)
  1. LYSODREN [Suspect]
     Active Substance: MITOTANE
     Indication: Adrenal gland cancer
     Dosage: 1 TABLET (500 MG) TWICE DAILY
     Route: 048
     Dates: start: 20230308, end: 20230312
  2. LYSODREN [Suspect]
     Active Substance: MITOTANE
     Indication: Adrenal gland cancer
     Dosage: 1 TABLET (500 MG) TWICE DAILY
     Route: 048
     Dates: start: 20230328, end: 2023
  3. BUSPIRONE TAB 10 MG [Concomitant]
     Indication: Product used for unknown indication
  4. ELIQUIS [Concomitant]
     Active Substance: APIXABAN
     Indication: Product used for unknown indication
  5. JARDIANCE TAB 25MG [Concomitant]
     Indication: Product used for unknown indication
  6. LANSOPRAZOLE CAP 30MG DR [Concomitant]
     Indication: Product used for unknown indication
  7. LISINOPRIL [Concomitant]
     Active Substance: LISINOPRIL
     Indication: Product used for unknown indication
  8. METFORMIN [Concomitant]
     Active Substance: METFORMIN HYDROCHLORIDE
     Indication: Product used for unknown indication
  9. NOVOLOG MIX INJ FLEXPEN [Concomitant]
     Indication: Product used for unknown indication
  10. OXYCODONE TAB 15MG [Concomitant]
     Indication: Product used for unknown indication

REACTIONS (2)
  - Hyperkalaemia [Unknown]
  - Renal failure [Recovered/Resolved]

NARRATIVE: CASE EVENT DATE: 20230312
